FAERS Safety Report 8516797-5 (Version None)
Quarter: 2012Q3

REPORT INFORMATION
  Report Type: 
  Country: None (occurrence: None)
  Receive Date: 20120718
  Receipt Date: 20120709
  Transmission Date: 20120928
  Serious: Yes (Death, Other)
  Sender: FDA-Public Use
  Company Number: GB-009507513-2012SP029208

PATIENT

DRUGS (6)
  1. ELOCON [Suspect]
     Indication: PRODUCT USED FOR UNKNOWN INDICATION
     Dates: start: 20120523
  2. ABACAVIR SULFATE/LAMIVUDINE [Concomitant]
     Indication: PRODUCT USED FOR UNKNOWN INDICATION
     Dosage: UNK UNK, BID
  3. ATAZANAVIR [Concomitant]
     Indication: PRODUCT USED FOR UNKNOWN INDICATION
     Dosage: UNK UNK, BID
  4. REYATAZ [Concomitant]
     Indication: PRODUCT USED FOR UNKNOWN INDICATION
     Dosage: UNK UNK, BID
  5. MARAVIROC [Concomitant]
     Indication: PRODUCT USED FOR UNKNOWN INDICATION
     Dosage: UNK UNK, BID
  6. RALTEGRAVIR [Concomitant]
     Indication: PRODUCT USED FOR UNKNOWN INDICATION

REACTIONS (12)
  - LOSS OF LIBIDO [None]
  - SKIN EXFOLIATION [None]
  - URINARY INCONTINENCE [None]
  - BURNING SENSATION [None]
  - SENSORY LOSS [None]
  - URETERIC OBSTRUCTION [None]
  - EYE PRURITUS [None]
  - ERECTILE DYSFUNCTION [None]
  - PENILE HAEMORRHAGE [None]
  - PARAESTHESIA [None]
  - HAIR GROWTH ABNORMAL [None]
  - SKIN DISCOLOURATION [None]
